FAERS Safety Report 16149360 (Version 1)
Quarter: 2019Q2

REPORT INFORMATION
  Report Type: Spontaneous
  Country: US (occurrence: US)
  Receive Date: 20190402
  Receipt Date: 20190402
  Transmission Date: 20190711
  Serious: No
  Sender: FDA-Public Use
  Company Number: US-DSJP-DSU-2019-108332

PATIENT

DRUGS (9)
  1. LEVOTHYROXINE. [Concomitant]
     Active Substance: LEVOTHYROXINE
     Indication: THYROID THERAPY
     Dosage: UNK
     Route: 065
  2. OLMESARTAN AG [Suspect]
     Active Substance: OLMESARTAN MEDOXOMIL
     Dosage: 20MG(1 1/2 TABLETS DAILY/ORAL), QD
     Route: 048
     Dates: start: 2019, end: 2019
  3. OLMESARTAN                         /01635402/ [Suspect]
     Active Substance: OLMESARTAN MEDOXOMIL
     Indication: HYPERTENSION
     Dosage: 1 1/2 TABLETS DAILY/ORAL
     Route: 048
     Dates: start: 201901, end: 2019
  4. BENICAR [Suspect]
     Active Substance: OLMESARTAN MEDOXOMIL
     Dosage: 20 MG 1 1/2 TABLETS, QD
     Route: 048
     Dates: start: 20190224
  5. OLMESARTAN                         /01635402/ [Suspect]
     Active Substance: OLMESARTAN MEDOXOMIL
     Dosage: 1 1/2 TABLETS DAILY
     Route: 048
     Dates: start: 2019, end: 2019
  6. OLMESARTAN AG [Suspect]
     Active Substance: OLMESARTAN MEDOXOMIL
     Indication: HYPERTENSION
     Dosage: 20 MG (1 1/2 TABLETS DAILY/ORAL), QD
     Route: 048
     Dates: start: 2017, end: 201901
  7. OLMESARTAN AG [Suspect]
     Active Substance: OLMESARTAN MEDOXOMIL
     Dosage: 20MG(1 1/2 TABLETS DAILY/ORAL), QD
     Route: 048
     Dates: start: 201901, end: 201902
  8. BENICAR [Suspect]
     Active Substance: OLMESARTAN MEDOXOMIL
     Indication: HYPERTENSION
     Dosage: 20 MG 1 1/2 TABLETS, QD
     Route: 048
     Dates: start: 2009, end: 2017
  9. OLMESARTAN                         /01635402/ [Suspect]
     Active Substance: OLMESARTAN MEDOXOMIL
     Dosage: 1 1/2 TABLETS DAILY
     Route: 048
     Dates: start: 2019, end: 2019

REACTIONS (2)
  - Off label use [Not Recovered/Not Resolved]
  - Pruritus [Recovered/Resolved]

NARRATIVE: CASE EVENT DATE: 2009
